FAERS Safety Report 24416037 (Version 1)
Quarter: 2024Q4

REPORT INFORMATION
  Report Type: Spontaneous
  Country: RO (occurrence: RO)
  Receive Date: 20241009
  Receipt Date: 20241009
  Transmission Date: 20250114
  Serious: Yes (Other)
  Sender: ABBVIE
  Company Number: RO-ABBVIE-5956455

PATIENT
  Sex: Male
  Weight: 68 kg

DRUGS (1)
  1. RINVOQ [Suspect]
     Active Substance: UPADACITINIB
     Indication: Dermatitis atopic
     Route: 048
     Dates: start: 20240418

REACTIONS (2)
  - Oesophageal carcinoma [Not Recovered/Not Resolved]
  - Adenocarcinoma [Unknown]

NARRATIVE: CASE EVENT DATE: 20240101
